FAERS Safety Report 4304283-8 (Version None)
Quarter: 2004Q1

REPORT INFORMATION
  Report Type: 
  Country: None (occurrence: None)
  Receive Date: 20040224
  Receipt Date: 20040211
  Transmission Date: 20041129
  Serious: Yes (Hospitalization)
  Sender: FDA-Public Use
  Company Number: 04P-163-0250303-00

PATIENT
  Age: 48 Year
  Sex: Male

DRUGS (13)
  1. VICODIN [Suspect]
  2. CETUXIMAB [Suspect]
     Indication: PANCREATIC CARCINOMA
     Dosage: 250 MG/M2, INTRAVENOUS
     Route: 042
     Dates: start: 20040107, end: 20040121
  3. DOCETAXEL [Suspect]
     Indication: PANCREATIC CARCINOMA
     Dosage: 56 MG, 1 IN 1 WK, INTRAVENOUS
     Route: 042
     Dates: start: 20040107, end: 20040121
  4. IRINOTECAN [Suspect]
     Indication: PANCREATIC CARCINOMA
     Dosage: 80 MG, 1 IN 1 WK, INTRAVENOUS
     Route: 042
     Dates: start: 20040107, end: 20010121
  5. DEXAMETHASONE [Suspect]
     Indication: PREMEDICATION
     Dosage: PER ORAL
     Route: 048
     Dates: start: 20040107, end: 20040122
  6. HEPARIN-FRACTION, SODIUM SALT [Suspect]
     Indication: PREMEDICATION
     Dosage: 1 IN 1 D, SUBCUTANEOUS
     Route: 058
     Dates: start: 20040129, end: 20040129
  7. MACROGOL [Suspect]
  8. ESOMEPRAZOLE [Suspect]
  9. LIPMAN [Concomitant]
  10. FENTANYL CITRATE [Concomitant]
  11. LOPERAMIDE HYDROCHLORIDE [Concomitant]
  12. TETRACYCLINE/DEXTROMETHORPHAN/HCTZ/NYSTATIN [Concomitant]
  13. CHLORPROMAZINE HCL [Concomitant]

REACTIONS (5)
  - DEHYDRATION [None]
  - DIARRHOEA [None]
  - HYPOTENSION [None]
  - NAUSEA [None]
  - VOMITING [None]
